FAERS Safety Report 9450974 (Version 1)
Quarter: 2013Q3

REPORT INFORMATION
  Report Type: Spontaneous
  Country: IL (occurrence: IL)
  Receive Date: 20130809
  Receipt Date: 20130809
  Transmission Date: 20140515
  Serious: Yes (Hospitalization)
  Sender: FDA-Public Use
  Company Number: IL-INCYTE CORPORATION-2013IN001737

PATIENT
  Age: 72 Year
  Sex: Male

DRUGS (2)
  1. JAKAVI [Suspect]
     Indication: MYELOFIBROSIS
     Dosage: 5 MG, BID
     Route: 048
  2. JAKAVI [Suspect]
     Dosage: 5 MG, QD
     Route: 048

REACTIONS (3)
  - Conjunctival haemorrhage [Recovered/Resolved]
  - Haematuria [Recovered/Resolved]
  - Platelet count decreased [Recovered/Resolved]
